FAERS Safety Report 6809868-2 (Version None)
Quarter: 2010Q2

REPORT INFORMATION
  Report Type: 
  Country: None (occurrence: None)
  Receive Date: 20100630
  Receipt Date: 20100628
  Transmission Date: 20101027
  Serious: Yes (Hospitalization, Other)
  Sender: FDA-Public Use
  Company Number: FR-ROXANE LABORATORIES, INC.-2010-RO-00768RO

PATIENT
  Age: 5 Year
  Sex: Male

DRUGS (6)
  1. AMLODIPINE [Suspect]
     Indication: HYPERTENSION
     Dosage: 10 MG
  2. AMLODIPINE [Suspect]
     Dosage: 30 MG
  3. AZATHIOPRINE [Suspect]
  4. TACROLIMUS [Suspect]
  5. TACROLIMUS [Suspect]
  6. STEROIDS [Suspect]

REACTIONS (11)
  - DIARRHOEA [None]
  - DRUG INTERACTION [None]
  - DRUG TOXICITY [None]
  - GASTROENTERITIS VIRAL [None]
  - HAEMODIALYSIS [None]
  - HYPERTENSION [None]
  - KIDNEY TRANSPLANT REJECTION [None]
  - NEPHROPATHY TOXIC [None]
  - OLIGURIA [None]
  - RENAL FAILURE ACUTE [None]
  - TRANSPLANT REJECTION [None]
